FAERS Safety Report 23129068 (Version 1)
Quarter: 2023Q4

REPORT INFORMATION
  Report Type: Spontaneous
  Country: None (occurrence: US)
  Receive Date: 20231031
  Receipt Date: 20231031
  Transmission Date: 20240110
  Serious: Yes (Hospitalization)
  Sender: FDA-Public Use
  Company Number: US-Amphastar Pharmaceuticals, Inc.-2147549

PATIENT
  Sex: Female

DRUGS (1)
  1. BAQSIMI [Suspect]
     Active Substance: GLUCAGON
     Route: 065

REACTIONS (2)
  - Diabetic retinopathy [Unknown]
  - Hospitalisation [Unknown]
